FAERS Safety Report 9719462 (Version 3)
Quarter: 2013Q4

REPORT INFORMATION
  Report Type: Spontaneous
  Country: FR (occurrence: FR)
  Receive Date: 20131128
  Receipt Date: 20131206
  Transmission Date: 20140711
  Serious: Yes (Other)
  Sender: FDA-Public Use
  Company Number: FR-ROCHE-1297045

PATIENT
  Age: 29 Year
  Sex: Male
  Weight: 80 kg

DRUGS (6)
  1. MIRCERA [Suspect]
     Indication: NEPHROGENIC ANAEMIA
     Route: 042
     Dates: start: 20131023, end: 20131023
  2. SEVELAMER [Concomitant]
     Indication: HYPERPHOSPHATAEMIA
     Route: 048
     Dates: start: 20110207
  3. CINACALCET [Concomitant]
     Indication: HYPERPARATHYROIDISM
     Route: 048
     Dates: start: 20110930
  4. FERINJECT [Concomitant]
     Indication: IRON DEFICIENCY
     Route: 042
     Dates: start: 20111119
  5. ARANESP [Concomitant]
     Route: 065
     Dates: start: 20030521, end: 20131026
  6. EUPANTOL [Concomitant]

REACTIONS (3)
  - Pruritus [Recovered/Resolved]
  - Vomiting [Recovered/Resolved]
  - Tachycardia [Recovered/Resolved]
